FAERS Safety Report 23991912 (Version 1)
Quarter: 2024Q2

REPORT INFORMATION
  Report Type: Report from Study
  Country: US (occurrence: US)
  Receive Date: 20240620
  Receipt Date: 20240620
  Transmission Date: 20240716
  Serious: Yes (Hospitalization, Other)
  Sender: FDA-Public Use
  Company Number: US-ABBVIE-5803628

PATIENT
  Age: 64 Year
  Sex: Female

DRUGS (1)
  1. RINVOQ [Suspect]
     Active Substance: UPADACITINIB
     Indication: Systemic lupus erythematosus
     Dosage: FORM STRENGTH: 15 MILLIGRAM
     Route: 048
     Dates: start: 2023

REACTIONS (6)
  - Diabetes mellitus [Recovering/Resolving]
  - Endometrial cancer [Unknown]
  - Incision site pain [Recovering/Resolving]
  - Vaginal discharge [Unknown]
  - Abdominal pain [Recovering/Resolving]
  - Overweight [Unknown]

NARRATIVE: CASE EVENT DATE: 20240430
